FAERS Safety Report 4618138-2 (Version None)
Quarter: 2005Q1

REPORT INFORMATION
  Report Type: 
  Country: None (occurrence: None)
  Receive Date: 20050314
  Receipt Date: 20040625
  Transmission Date: 20050727
  Serious: No
  Sender: FDA-Public Use
  Company Number: 8430

PATIENT
  Age: 55 Year
  Sex: Female

DRUGS (1)
  1. PACLITAXEL [Suspect]

REACTIONS (3)
  - DIZZINESS [None]
  - FLUSHING [None]
  - PAIN [None]
